FAERS Safety Report 6305420-6 (Version None)
Quarter: 2009Q3

REPORT INFORMATION
  Report Type: 
  Country: None (occurrence: None)
  Receive Date: 20090811
  Receipt Date: 20090730
  Transmission Date: 20100115
  Serious: Yes (Hospitalization)
  Sender: FDA-Public Use
  Company Number: ES-ROCHE-647152

PATIENT
  Age: 66 Year
  Sex: Male

DRUGS (7)
  1. CELLCEPT [Suspect]
     Route: 048
     Dates: start: 20070901
  2. PREDNISONE [Suspect]
     Route: 048
     Dates: start: 20070901
  3. PROGRAF [Suspect]
     Route: 048
     Dates: start: 20070901, end: 20090101
  4. ADALAT [Concomitant]
     Indication: HYPERTENSION
     Dosage: FREQUENCY: DAILY
     Route: 048
  5. ARANESP [Concomitant]
     Indication: ANAEMIA
     Route: 058
     Dates: start: 20070101
  6. MIMPARA [Concomitant]
     Indication: HYPERCALCAEMIA
     Dates: start: 20070101
  7. SINTROM [Concomitant]
     Indication: ATRIAL FIBRILLATION
     Dates: start: 20070101

REACTIONS (1)
  - MULTIPLE MYELOMA [None]
